FAERS Safety Report 12304993 (Version 4)
Quarter: 2016Q2

REPORT INFORMATION
  Report Type: Spontaneous
  Country: US (occurrence: US)
  Receive Date: 20160426
  Receipt Date: 20160614
  Transmission Date: 20160815
  Serious: Yes (Hospitalization, Other)
  Sender: FDA-Public Use
  Company Number: US-ASTELLAS-2016US012442

PATIENT
  Age: 70 Year
  Sex: Male

DRUGS (2)
  1. WARFARIN [Concomitant]
     Active Substance: WARFARIN
     Indication: PRODUCT USED FOR UNKNOWN INDICATION
     Dosage: UNK UNK, UNKNOWN FREQ.
     Route: 065
  2. XTANDI [Suspect]
     Active Substance: ENZALUTAMIDE
     Indication: PROSTATE CANCER
     Route: 048
     Dates: start: 20160311

REACTIONS (8)
  - Unresponsive to stimuli [Recovered/Resolved]
  - Pneumonia [Unknown]
  - Drug dose omission [Recovered/Resolved]
  - Hemiparesis [Recovered/Resolved]
  - Drooling [Recovered/Resolved]
  - Dysphagia [Unknown]
  - Treatment noncompliance [Unknown]
  - Fatigue [Not Recovered/Not Resolved]

NARRATIVE: CASE EVENT DATE: 20160311
